FAERS Safety Report 9157789 (Version 1)
Quarter: 2013Q1

REPORT INFORMATION
  Report Type: Spontaneous
  Country: DE (occurrence: None)
  Receive Date: 20130212
  Receipt Date: 20130212
  Transmission Date: 20140127
  Serious: Yes (Hospitalization)
  Sender: FDA-Public Use
  Company Number: 2013020039

PATIENT
  Sex: Male

DRUGS (11)
  1. TORASEMIDE [Suspect]
     Dosage: INTAKE NOT ASSURED, ORAL
     Dates: start: 20130126
  2. ZANERIL [Suspect]
     Dosage: INTAKE NOT ASSURED, ORAL
     Dates: start: 20130126
  3. ETHANOL [Suspect]
     Dosage: 20 BOTTLES (INTAKE NOT ASSURED, ORAL)
     Dates: start: 20130126
  4. ALLOPURINOL [Suspect]
     Dosage: INTAKE NOT ASSURED, ORAL
     Dates: start: 20130126
  5. PRAVASTATIN [Suspect]
     Dosage: INTAKE NOT ASSURED, ORAL
     Dates: start: 20130126
  6. ACETYLSALICYLIC ACID [Suspect]
     Dosage: INTAKE NOT ASSURED, ORAL
     Dates: start: 20130126
  7. METFORMIN (METFORMIN) [Suspect]
     Dosage: INTAKE NOT ASSURED, ORAL
     Dates: start: 20130126
  8. METOPROLOL (METOPROLOL) [Suspect]
     Dosage: INTAKE NOT ASSURED (47.5 MG) ORAL
     Dates: start: 20130126
  9. ENALAPRIL [Suspect]
     Dosage: INTAKE NOT ASSURED, ORAL
  10. ACETYLCYSTEINE [Suspect]
     Dosage: ORAL
     Dates: start: 20130126
  11. GLIMEPIRIDE (GLIMEPIRIDE) [Suspect]
     Dosage: INTAKE NOT ASSURED, ORAL
     Dates: start: 20130126

REACTIONS (1)
  - Inappropriate schedule of drug administration [None]
